FAERS Safety Report 4683683-0 (Version None)
Quarter: 2005Q2

REPORT INFORMATION
  Report Type: 
  Country: None (occurrence: None)
  Receive Date: 20050607
  Receipt Date: 20050527
  Transmission Date: 20051028
  Serious: Yes (Hospitalization)
  Sender: FDA-Public Use
  Company Number: 200511813FR

PATIENT
  Age: 72 Year
  Sex: Female
  Weight: 116 kg

DRUGS (7)
  1. LASILIX [Suspect]
     Route: 048
     Dates: end: 20050415
  2. COVERSYL [Suspect]
     Route: 048
     Dates: start: 20050213, end: 20050413
  3. ATACAND [Suspect]
     Route: 048
     Dates: start: 20050213, end: 20050418
  4. LEVOTHYROX [Concomitant]
     Route: 048
  5. MOPRAL [Concomitant]
     Route: 048
  6. CORDARONE [Concomitant]
     Route: 048
  7. PREVISCAN [Concomitant]
     Route: 048

REACTIONS (2)
  - HYPERKALAEMIA [None]
  - RENAL FAILURE ACUTE [None]
